FAERS Safety Report 7170880-8 (Version None)
Quarter: 2010Q4

REPORT INFORMATION
  Report Type: 
  Country: None (occurrence: None)
  Receive Date: 20101217
  Receipt Date: 20101208
  Transmission Date: 20110411
  Serious: Yes (Other)
  Sender: FDA-Public Use
  Company Number: JP-JNJFOC-20100406019

PATIENT
  Age: 56 Year
  Sex: Male
  Weight: 65 kg

DRUGS (22)
  1. REMICADE [Suspect]
     Indication: CROHN'S DISEASE
     Route: 042
  2. REMICADE [Suspect]
     Route: 042
  3. REMICADE [Suspect]
     Route: 042
  4. REMICADE [Suspect]
     Route: 042
  5. REMICADE [Suspect]
     Route: 042
  6. REMICADE [Suspect]
     Route: 042
  7. REMICADE [Suspect]
     Route: 042
  8. REMICADE [Suspect]
     Route: 042
  9. REMICADE [Suspect]
     Route: 042
  10. REMICADE [Suspect]
     Route: 042
  11. AZELASTINE HCL [Concomitant]
     Indication: PROPHYLAXIS
     Dosage: GIVEN WITH INFLIXIMAB DOSES
     Route: 048
  12. PENTASA [Concomitant]
     Indication: CROHN'S DISEASE
     Route: 048
  13. LOPEMIN [Concomitant]
     Indication: DIARRHOEA
     Route: 048
  14. DAI-KENCHU-TO [Concomitant]
     Indication: ABDOMINAL DISTENSION
     Route: 048
  15. GASCON [Concomitant]
     Indication: ABDOMINAL DISTENSION
     Route: 048
  16. METHYCOBAL [Concomitant]
     Indication: VITAMIN SUPPLEMENTATION
     Route: 048
  17. PROMAC (POLAPREZINC) [Concomitant]
     Indication: MINERAL SUPPLEMENTATION
     Route: 048
  18. TAGAMET [Concomitant]
     Indication: GASTRIC ULCER
     Route: 048
  19. PREDNISOLONE [Concomitant]
     Indication: CROHN'S DISEASE
     Route: 048
  20. PREDNISOLONE [Concomitant]
     Route: 048
  21. PREDNISOLONE [Concomitant]
     Route: 048
  22. PREDNISOLONE [Concomitant]
     Route: 048

REACTIONS (1)
  - LUPUS-LIKE SYNDROME [None]
